FAERS Safety Report 10213543 (Version 2)
Quarter: 2014Q2

REPORT INFORMATION
  Report Type: Spontaneous
  Country: GB (occurrence: GB)
  Receive Date: 20140603
  Receipt Date: 20140603
  Transmission Date: 20141212
  Serious: Yes (Other)
  Sender: FDA-Public Use
  Company Number: GB-MPIJNJ-2014JNJ002498

PATIENT
  Sex: 0

DRUGS (2)
  1. VELCADE [Suspect]
     Indication: PLASMA CELL MYELOMA
     Dosage: UNK
     Route: 065
     Dates: start: 20130731, end: 20131227
  2. VELCADE [Suspect]
     Dosage: UNK
     Dates: start: 20131011, end: 20140123

REACTIONS (2)
  - Drug ineffective [Recovered/Resolved]
  - Nerve root compression [Unknown]
